FAERS Safety Report 19953917 (Version 1)
Quarter: 2021Q4

REPORT INFORMATION
  Report Type: Report from Study
  Country: US (occurrence: US)
  Receive Date: 20211014
  Receipt Date: 20211014
  Transmission Date: 20220303
  Serious: Yes (Hospitalization, Other)
  Sender: FDA-Public Use
  Company Number: US-BRISTOL-MYERS SQUIBB COMPANY-BMS-2021-100377

PATIENT
  Age: 77 Year
  Sex: Female
  Weight: 83.3 kg

DRUGS (4)
  1. ELOTUZUMAB [Suspect]
     Active Substance: ELOTUZUMAB
     Indication: Plasma cell myeloma
     Dosage: 800 MG OR 10 MG/KG ON D1, 8, 15 AND 22 OF CYCLE 1 AND 2, 20 MG/KG ON D1 OF SUBSEQUENT CYCLES
     Route: 042
     Dates: start: 20210305, end: 20210721
  2. POMALIDOMIDE [Suspect]
     Active Substance: POMALIDOMIDE
     Indication: Plasma cell myeloma
     Dosage: 2 MG DAYS 1 TO 21 THEN OFF FOR 7 DAYS
     Route: 048
     Dates: start: 20210305, end: 20210721
  3. DEXAMETHASONE [Suspect]
     Active Substance: DEXAMETHASONE
     Indication: Plasma cell myeloma
     Dosage: 8 MG QW BEFORE EACH ELOTUZUMAB AND 20 MG ON WEEKS OF NO ELOTUZUMAB
     Route: 048
     Dates: start: 20210305, end: 20210721
  4. DEXAMETHASONE [Suspect]
     Active Substance: DEXAMETHASONE
     Indication: Plasma cell myeloma
     Dosage: 8 MG QW BEFORE EACH ELOTUZUMAB AND 20 MG ON WEEKS OF NO ELOTUZUMAB
     Route: 042
     Dates: start: 20210305, end: 20210721

REACTIONS (1)
  - Cytomegalovirus viraemia [Not Recovered/Not Resolved]

NARRATIVE: CASE EVENT DATE: 20210721
